FAERS Safety Report 5740680-1 (Version None)
Quarter: 2008Q2

REPORT INFORMATION
  Report Type: 
  Country: None (occurrence: None)
  Receive Date: 20080516
  Receipt Date: 20080507
  Transmission Date: 20081010
  Serious: Yes (Hospitalization, Other)
  Sender: FDA-Public Use
  Company Number: US-AMGEN-QUU274775

PATIENT
  Sex: Female
  Weight: 94.4 kg

DRUGS (5)
  1. ENBREL [Suspect]
     Indication: PSORIATIC ARTHROPATHY
     Route: 058
     Dates: start: 20001001, end: 20080104
  2. CELEBREX [Concomitant]
  3. GLUCOPHAGE [Concomitant]
  4. CELEXA [Concomitant]
  5. VITAMIN CAP [Concomitant]

REACTIONS (13)
  - BACK PAIN [None]
  - CHOLELITHIASIS [None]
  - HEPATIC STEATOSIS [None]
  - HIATUS HERNIA [None]
  - LUNG INFECTION [None]
  - PLEURAL EFFUSION [None]
  - PNEUMOTHORAX [None]
  - PSORIATIC ARTHROPATHY [None]
  - PULMONARY GRANULOMA [None]
  - PULMONARY TUBERCULOSIS [None]
  - SENSORY DISTURBANCE [None]
  - SINUSITIS [None]
  - TYPE 2 DIABETES MELLITUS [None]
